FAERS Safety Report 6458566-6 (Version None)
Quarter: 2009Q4

REPORT INFORMATION
  Report Type: 
  Country: None (occurrence: None)
  Receive Date: 20091126
  Receipt Date: 20091118
  Transmission Date: 20100525
  Serious: Yes (Hospitalization, Other)
  Sender: FDA-Public Use
  Company Number: US-ASTRAZENECA-2007UW12794

PATIENT
  Age: 56 Year
  Sex: Female
  Weight: 111.1 kg

DRUGS (30)
  1. SEROQUEL [Suspect]
     Indication: DEPRESSION
     Route: 048
     Dates: start: 20021121, end: 20030911
  2. SEROQUEL [Suspect]
     Route: 048
     Dates: start: 20040122
  3. RISPERDAL [Suspect]
     Indication: DEPRESSION
     Route: 065
     Dates: start: 20021021, end: 20040101
  4. RISPERDAL [Suspect]
     Route: 065
     Dates: start: 20020101
  5. GLUCOPHAGE [Concomitant]
     Route: 048
  6. SYNTHROID [Concomitant]
     Route: 048
  7. VERAPAMIL [Concomitant]
     Route: 065
  8. PHENERGAN [Concomitant]
     Route: 048
  9. LISINOPRIL [Concomitant]
     Route: 048
  10. LEXAPRO [Concomitant]
     Route: 065
     Dates: start: 20030101, end: 20040101
  11. NEURONTIN [Concomitant]
     Route: 048
  12. ESTRACE [Concomitant]
     Route: 048
  13. PERCOCET [Concomitant]
     Route: 065
  14. INSULIN [Concomitant]
     Dosage: 5,6,10,18 UNITS
     Route: 065
  15. NEXIUM [Concomitant]
     Route: 048
  16. ALDACTAZIDE [Concomitant]
     Route: 048
  17. PLETAL [Concomitant]
     Route: 048
  18. METOPROLOL [Concomitant]
     Route: 048
  19. ASPIRIN [Concomitant]
     Route: 048
  20. KAY CIEL DURA-TABS [Concomitant]
     Route: 048
  21. FUROSEMIDE [Concomitant]
     Route: 048
  22. ABILIFY [Concomitant]
     Dates: start: 20040101
  23. CLOZARIL [Concomitant]
  24. THORAZINE [Concomitant]
  25. AMBIEN [Concomitant]
     Dates: start: 20020101, end: 20030101
  26. EFFEXOR [Concomitant]
     Dates: start: 20020101, end: 20040101
  27. KLONOPIN [Concomitant]
     Dates: start: 20040101
  28. CELEXA [Concomitant]
     Dates: start: 20030522
  29. LASIX [Concomitant]
  30. ACCUPRIL [Concomitant]

REACTIONS (25)
  - ABDOMINAL PAIN [None]
  - BLOODY DISCHARGE [None]
  - CARDIAC FAILURE CONGESTIVE [None]
  - CHOLECYSTITIS ACUTE [None]
  - CHOLELITHIASIS [None]
  - EAR PAIN [None]
  - FACIAL PAIN [None]
  - HYPOTHYROIDISM [None]
  - MELAENA [None]
  - MUSCULOSKELETAL PAIN [None]
  - NAUSEA [None]
  - NECK PAIN [None]
  - ORAL CANDIDIASIS [None]
  - OSTEOMYELITIS [None]
  - PANCREATITIS [None]
  - PANCREATITIS ACUTE [None]
  - PANCREATITIS CHRONIC [None]
  - PANCREATITIS RELAPSING [None]
  - PERIPHERAL ISCHAEMIA [None]
  - PNEUMONIA [None]
  - RENAL FAILURE CHRONIC [None]
  - TYPE 2 DIABETES MELLITUS [None]
  - UPPER RESPIRATORY TRACT INFECTION [None]
  - VERTIGO [None]
  - VOMITING [None]
